FAERS Safety Report 6689303-8 (Version None)
Quarter: 2010Q2

REPORT INFORMATION
  Report Type: 
  Country: None (occurrence: None)
  Receive Date: 20100416
  Receipt Date: 20100406
  Transmission Date: 20101027
  Serious: Yes (Hospitalization)
  Sender: FDA-Public Use
  Company Number: 554971

PATIENT
  Age: 7 Month
  Sex: Male

DRUGS (3)
  1. VINCRISTINE SULFATE [Suspect]
     Indication: HEPATOBLASTOMA
  2. CISPLATIN [Suspect]
     Indication: HEPATOBLASTOMA
  3. FLUOROURACIL [Suspect]
     Indication: HEPATOBLASTOMA

REACTIONS (18)
  - ABDOMINAL DISTENSION [None]
  - ABDOMINAL MASS [None]
  - ANAEMIA [None]
  - COAGULOPATHY [None]
  - DISSEMINATED INTRAVASCULAR COAGULATION [None]
  - ELECTROLYTE IMBALANCE [None]
  - HAEMOGLOBIN DECREASED [None]
  - HYPERKALAEMIA [None]
  - HYPERPHOSPHATAEMIA [None]
  - HYPERURICAEMIA [None]
  - RESPIRATORY FAILURE [None]
  - TACHYCARDIA [None]
  - TACHYPNOEA [None]
  - TUMOUR HAEMORRHAGE [None]
  - TUMOUR LYSIS SYNDROME [None]
  - TUMOUR NECROSIS [None]
  - VOMITING [None]
  - WEIGHT DECREASED [None]
